FAERS Safety Report 12380796 (Version 2)
Quarter: 2018Q4

REPORT INFORMATION
  Report Type: Spontaneous
  Country: US (occurrence: US)
  Receive Date: 20160518
  Receipt Date: 20181019
  Transmission Date: 20190204
  Serious: Yes (Other)
  Sender: FDA-Public Use
  Company Number: US-BRISTOL-MYERS SQUIBB COMPANY-BMS-2016-037883

PATIENT
  Sex: Male

DRUGS (1)
  1. ELIQUIS [Suspect]
     Active Substance: APIXABAN
     Indication: PULMONARY EMBOLISM
     Dosage: 5 MG, BID
     Route: 048
     Dates: start: 201512

REACTIONS (11)
  - Depression [Unknown]
  - Back pain [Unknown]
  - Chromaturia [Unknown]
  - Abnormal dreams [Unknown]
  - Gingival bleeding [Unknown]
  - Hypoaesthesia [Unknown]
  - Fatigue [Unknown]
  - Dizziness [Unknown]
  - Prostate cancer [Unknown]
  - Lymphoedema [Unknown]
  - Paraesthesia [Unknown]
